FAERS Safety Report 15622842 (Version 1)
Quarter: 2018Q4

REPORT INFORMATION
  Report Type: Spontaneous
  Country: JP (occurrence: JP)
  Receive Date: 20181115
  Receipt Date: 20181115
  Transmission Date: 20190205
  Serious: Yes (Death, Other)
  Sender: FDA-Public Use
  Company Number: JP-MYLANLABS-2018M1086002

PATIENT
  Age: 68 Year
  Sex: Male

DRUGS (11)
  1. MELPHALAN. [Suspect]
     Active Substance: MELPHALAN
     Indication: BONE MARROW CONDITIONING REGIMEN
     Dosage: REDUCED-INTENSITY
     Route: 065
  2. METHOTREXATE. [Suspect]
     Active Substance: METHOTREXATE
     Indication: PROPHYLAXIS AGAINST GRAFT VERSUS HOST DISEASE
     Dosage: MINI DOSE, ON DAYS 1 AND 3 POST-TRANSPLANTATION
     Route: 042
  3. FLUCONAZOLE. [Suspect]
     Active Substance: FLUCONAZOLE
     Indication: FUNGAEMIA
     Route: 065
  4. MEROPENEM. [Concomitant]
     Active Substance: MEROPENEM
     Indication: STAPHYLOCOCCAL INFECTION
     Route: 042
  5. DAPTOMYCIN. [Concomitant]
     Active Substance: DAPTOMYCIN
     Indication: STAPHYLOCOCCAL INFECTION
     Route: 065
  6. FLUDARABINE [Suspect]
     Active Substance: FLUDARABINE PHOSPHATE
     Indication: BONE MARROW CONDITIONING REGIMEN
     Dosage: REDUCED-INTENSITY
     Route: 065
  7. CASPOFUNGIN [Suspect]
     Active Substance: CASPOFUNGIN
     Indication: FUNGAEMIA
     Dosage: EMPIRICAL THERAPY WITH CASPOFUNGIN WAS CONTINUED FOR 2 WEEKS
     Route: 065
  8. MICAFUNGIN. [Concomitant]
     Active Substance: MICAFUNGIN SODIUM
     Indication: FEBRILE NEUTROPENIA
     Route: 065
  9. AMPHOTERICIN B, LIPOSOME [Concomitant]
     Active Substance: AMPHOTERICIN B
     Indication: PRODUCT USED FOR UNKNOWN INDICATION
     Route: 065
  10. TACROLIMUS. [Concomitant]
     Active Substance: TACROLIMUS
     Indication: PROPHYLAXIS AGAINST GRAFT VERSUS HOST DISEASE
     Route: 050
  11. VANCOMYCIN [Concomitant]
     Active Substance: VANCOMYCIN
     Indication: ENTEROCOCCAL INFECTION
     Route: 065

REACTIONS (10)
  - Splenic infection fungal [Fatal]
  - Haemophagocytic lymphohistiocytosis [Fatal]
  - Respiratory tract infection fungal [Fatal]
  - Stomatitis [Fatal]
  - Geotrichum infection [Fatal]
  - Renal impairment [Fatal]
  - Central nervous system fungal infection [Fatal]
  - Hepatic function abnormal [Fatal]
  - Respiratory failure [Fatal]
  - Drug ineffective [Unknown]
